FAERS Safety Report 20490195 (Version 2)
Quarter: 2022Q1

REPORT INFORMATION
  Report Type: Spontaneous
  Country: MA (occurrence: MA)
  Receive Date: 20220218
  Receipt Date: 20220325
  Transmission Date: 20220423
  Serious: No
  Sender: FDA-Public Use
  Company Number: MA-PFIZER INC-202200148534

PATIENT
  Age: 11 Year
  Sex: Female

DRUGS (1)
  1. GENOTROPIN [Suspect]
     Active Substance: SOMATROPIN
     Dosage: 1.4 MG

REACTIONS (1)
  - Device failure [Unknown]

NARRATIVE: CASE EVENT DATE: 20220117
